FAERS Safety Report 18145981 (Version 1)
Quarter: 2020Q3

REPORT INFORMATION
  Report Type: Report from Study
  Country: US (occurrence: US)
  Receive Date: 20200813
  Receipt Date: 20200813
  Transmission Date: 20201103
  Serious: No
  Sender: FDA-Public Use
  Company Number: NVSC2020US221017

PATIENT
  Age: 41 Year
  Sex: Female

DRUGS (1)
  1. ILARIS [Suspect]
     Active Substance: CANAKINUMAB
     Indication: PRODUCT USED FOR UNKNOWN INDICATION
     Route: 065

REACTIONS (5)
  - Arthralgia [Unknown]
  - Drug hypersensitivity [Unknown]
  - Pyrexia [Unknown]
  - Condition aggravated [Unknown]
  - Myalgia [Unknown]

NARRATIVE: CASE EVENT DATE: 20200807
